FAERS Safety Report 7784015-1 (Version None)
Quarter: 2011Q3

REPORT INFORMATION
  Report Type: 
  Country: None (occurrence: None)
  Receive Date: 20110928
  Receipt Date: 20110919
  Transmission Date: 20111222
  Serious: Yes (Other)
  Sender: FDA-Public Use
  Company Number: CA-JNJFOC-20110907790

PATIENT
  Sex: Female

DRUGS (4)
  1. MONISTAT 3 [Suspect]
     Route: 067
  2. MONISTAT 3 [Suspect]
     Route: 061
  3. MONISTAT 3 [Suspect]
     Route: 061
  4. MONISTAT 3 [Suspect]
     Indication: PRODUCT USED FOR UNKNOWN INDICATION
     Route: 067

REACTIONS (3)
  - NAUSEA [None]
  - CHEMICAL INJURY [None]
  - VULVOVAGINAL PRURITUS [None]
